FAERS Safety Report 8373868-4 (Version None)
Quarter: 2012Q2

REPORT INFORMATION
  Report Type: 
  Country: None (occurrence: None)
  Receive Date: 20120521
  Receipt Date: 20120316
  Transmission Date: 20120825
  Serious: Yes (Hospitalization)
  Sender: FDA-Public Use
  Company Number: US-ROCHE-1032791

PATIENT
  Sex: Female

DRUGS (1)
  1. NUTROPIN [Suspect]
     Indication: PRODUCT USED FOR UNKNOWN INDICATION
     Dates: start: 20120302

REACTIONS (5)
  - ASTHMA [None]
  - EAR INFECTION [None]
  - NASOPHARYNGITIS [None]
  - GALLBLADDER OPERATION [None]
  - CONJUNCTIVITIS INFECTIVE [None]
